FAERS Safety Report 6640544-5 (Version None)
Quarter: 2010Q1

REPORT INFORMATION
  Report Type: 
  Country: None (occurrence: None)
  Receive Date: 20100318
  Receipt Date: 20100310
  Transmission Date: 20100710
  Serious: Yes (Life-Threatening)
  Sender: FDA-Public Use
  Company Number: US-JNJFOC-20091006976

PATIENT
  Sex: Female
  Weight: 52.16 kg

DRUGS (2)
  1. SIMPONI [Suspect]
     Indication: PSORIATIC ARTHROPATHY
     Route: 058
     Dates: start: 20090915
  2. SIMPONI [Suspect]
     Indication: PSORIASIS
     Route: 058
     Dates: start: 20090915

REACTIONS (3)
  - ANXIETY [None]
  - LIVER FUNCTION TEST ABNORMAL [None]
  - PSORIASIS [None]
